FAERS Safety Report 23181981 (Version 1)
Quarter: 2023Q4

REPORT INFORMATION
  Report Type: Spontaneous
  Country: US (occurrence: US)
  Receive Date: 20231114
  Receipt Date: 20231114
  Transmission Date: 20240110
  Serious: No
  Sender: FDA-Public Use
  Company Number: US-BRISTOL-MYERS SQUIBB COMPANY-2023-163138

PATIENT
  Age: 75 Year
  Sex: Male

DRUGS (2)
  1. SPRYCEL [Suspect]
     Active Substance: DASATINIB
     Indication: Leukaemoid reaction
     Route: 048
     Dates: start: 202310
  2. SPRYCEL [Suspect]
     Active Substance: DASATINIB
     Indication: White blood cell count increased

REACTIONS (1)
  - Diarrhoea [Unknown]
